FAERS Safety Report 25105032 (Version 1)
Quarter: 2025Q1

REPORT INFORMATION
  Report Type: Spontaneous
  Country: DE (occurrence: DE)
  Receive Date: 20250321
  Receipt Date: 20250321
  Transmission Date: 20250409
  Serious: Yes (Other)
  Sender: COVIS PHARMA GMBH
  Company Number: DE-AMAG-2025COV00323

PATIENT
  Sex: Female

DRUGS (1)
  1. ACLIDINIUM BROMIDE [Suspect]
     Active Substance: ACLIDINIUM BROMIDE
     Indication: Chronic obstructive pulmonary disease

REACTIONS (3)
  - Pulmonary oedema [Unknown]
  - Dyspnoea [Unknown]
  - Product dose omission issue [Unknown]
